FAERS Safety Report 6135943-4 (Version None)
Quarter: 2009Q1

REPORT INFORMATION
  Report Type: 
  Country: None (occurrence: None)
  Receive Date: 20090329
  Receipt Date: 20080926
  Transmission Date: 20090719
  Serious: No
  Sender: FDA-Public Use
  Company Number: US-BAUSCH-2008BL004246

PATIENT
  Age: 65 Year
  Sex: Female

DRUGS (2)
  1. ALBUTEROL SULFATE [Suspect]
     Indication: ASTHMA
     Route: 049
     Dates: start: 20030101, end: 20030101
  2. PROVENTIL GENTLEHALER [Concomitant]

REACTIONS (1)
  - DRUG INEFFECTIVE [None]
